FAERS Safety Report 8582718-2 (Version None)
Quarter: 2012Q3

REPORT INFORMATION
  Report Type: 
  Country: None (occurrence: None)
  Receive Date: 20120809
  Receipt Date: 20120731
  Transmission Date: 20120928
  Serious: Yes (Other)
  Sender: FDA-Public Use
  Company Number: US-JNJFOC-20120701811

PATIENT
  Sex: Female

DRUGS (7)
  1. METHAMPHETAMINE HYDROCHLORIDE [Suspect]
     Indication: PRODUCT USED FOR UNKNOWN INDICATION
     Route: 065
  2. TETRAHYDROCANNABINOL [Suspect]
     Indication: PRODUCT USED FOR UNKNOWN INDICATION
     Route: 065
  3. FERROUS SULFATE TAB [Concomitant]
     Route: 065
  4. MULTI-VITAMINS [Concomitant]
     Route: 065
  5. CALCIUM [Concomitant]
     Route: 065
  6. TOPAMAX [Suspect]
     Indication: MIGRAINE
     Route: 048
     Dates: start: 20050101, end: 20111001
  7. TYLENOL W/ CODEINE [Suspect]
     Indication: PRODUCT USED FOR UNKNOWN INDICATION
     Route: 065

REACTIONS (7)
  - DRUG INEFFECTIVE [None]
  - ANXIETY [None]
  - COLPOCELE [None]
  - GESTATIONAL DIABETES [None]
  - STRESS [None]
  - MATERNAL EXPOSURE DURING PREGNANCY [None]
  - DEPRESSION [None]
